FAERS Safety Report 7197041-0 (Version None)
Quarter: 2010Q4

REPORT INFORMATION
  Report Type: 
  Country: None (occurrence: None)
  Receive Date: 20101224
  Receipt Date: 20101217
  Transmission Date: 20110411
  Serious: No
  Sender: FDA-Public Use
  Company Number: PHHY2010BE80410

PATIENT
  Sex: Male

DRUGS (3)
  1. GLEEVEC [Suspect]
  2. TASIGNA [Suspect]
     Indication: CHRONIC MYELOID LEUKAEMIA
     Dosage: 400 MG, BID
     Route: 048
     Dates: start: 20101119, end: 20101126
  3. TASIGNA [Suspect]
     Dosage: 200 MG, BID
     Dates: start: 20101215

REACTIONS (4)
  - DERMATITIS EXFOLIATIVE [None]
  - ERYTHEMA [None]
  - PRURITUS [None]
  - RASH [None]
